FAERS Safety Report 15005084 (Version 4)
Quarter: 2018Q4

REPORT INFORMATION
  Report Type: Spontaneous
  Country: US (occurrence: US)
  Receive Date: 20180613
  Receipt Date: 20181010
  Transmission Date: 20190204
  Serious: Yes (Other)
  Sender: FDA-Public Use
  Company Number: US-GLAXOSMITHKLINE-US2018GSK103871

PATIENT
  Age: 42 Year
  Sex: Female
  Weight: 48.98 kg

DRUGS (14)
  1. FLOVENT HFA [Suspect]
     Active Substance: FLUTICASONE PROPIONATE
     Dosage: 4 PUFF(S), BID, 220MCG
  2. NASACORT [Concomitant]
     Active Substance: TRIAMCINOLONE ACETONIDE
  3. LEVOSTIN [Concomitant]
  4. PROVENTIL [Concomitant]
     Active Substance: ALBUTEROL
  5. VITAMIN E [Concomitant]
     Active Substance: .ALPHA.-TOCOPHEROL
  6. FLOVENT HFA [Suspect]
     Active Substance: FLUTICASONE PROPIONATE
     Dosage: 3 PUFF(S), QD, 2PUFFS AM, 1PUFFQHS
  7. SINGULAIR [Concomitant]
     Active Substance: MONTELUKAST SODIUM
     Indication: PRODUCT USED FOR UNKNOWN INDICATION
     Dosage: 10 MG, 1D
  8. CALCIUM WITH VITAMIN D [Concomitant]
     Active Substance: CALCIUM\VITAMIN D
  9. FLOVENT HFA [Suspect]
     Active Substance: FLUTICASONE PROPIONATE
     Dosage: 1 PUFF(S), UNK, 110MCG
  10. HYDROCORTISONE. [Concomitant]
     Active Substance: HYDROCORTISONE
  11. ALLEGRA [Concomitant]
     Active Substance: FEXOFENADINE HYDROCHLORIDE
  12. MAXAIR [Concomitant]
     Active Substance: PIRBUTEROL ACETATE
  13. SEREVENT DISKUS [Concomitant]
     Active Substance: SALMETEROL XINAFOATE
     Indication: ASTHMA
     Dosage: 2 PUFF(S), BID
  14. FLOVENT HFA [Suspect]
     Active Substance: FLUTICASONE PROPIONATE
     Indication: ASTHMA
     Dosage: 2 PUFF(S), BID, 220MCG

REACTIONS (49)
  - Hyperhidrosis [Unknown]
  - Weight decreased [Unknown]
  - Increased tendency to bruise [Unknown]
  - Asthma [Recovering/Resolving]
  - Blood corticotrophin decreased [Unknown]
  - Nausea [Unknown]
  - Dizziness [Unknown]
  - Drug hypersensitivity [Unknown]
  - Insomnia [Unknown]
  - Muscular weakness [Unknown]
  - Hunger [Unknown]
  - Fatigue [Recovering/Resolving]
  - Eructation [Unknown]
  - Increased appetite [Unknown]
  - Somnolence [Recovering/Resolving]
  - Adrenal insufficiency [Unknown]
  - Muscle spasms [Recovering/Resolving]
  - Middle insomnia [Unknown]
  - Specific gravity urine decreased [Unknown]
  - Pruritus [Unknown]
  - Asthenia [Recovering/Resolving]
  - Pulmonary congestion [Unknown]
  - Secondary adrenocortical insufficiency [Not Recovered/Not Resolved]
  - Amnesia [Unknown]
  - Muscle twitching [Unknown]
  - Hypoglycaemia [Unknown]
  - Seborrhoea [Unknown]
  - Polyuria [Unknown]
  - Back pain [Unknown]
  - Condition aggravated [Unknown]
  - Intentional dose omission [Unknown]
  - Thirst [Unknown]
  - Arthralgia [Unknown]
  - Pollakiuria [Unknown]
  - Drug effect increased [Unknown]
  - Oropharyngeal pain [Unknown]
  - Neck pain [Unknown]
  - General physical health deterioration [Unknown]
  - Mood swings [Unknown]
  - Anxiety [Unknown]
  - Chest discomfort [Unknown]
  - Contusion [Unknown]
  - Abdominal distension [Unknown]
  - Snoring [Unknown]
  - Tremor [Unknown]
  - Sinusitis [Recovered/Resolved]
  - Mobility decreased [Unknown]
  - Menopausal symptoms [Unknown]
  - Headache [Unknown]

NARRATIVE: CASE EVENT DATE: 19990811
